FAERS Safety Report 7150647-7 (Version None)
Quarter: 2010Q4

REPORT INFORMATION
  Report Type: 
  Country: None (occurrence: None)
  Receive Date: 20101124
  Receipt Date: 20101108
  Transmission Date: 20110411
  Serious: Yes (Hospitalization)
  Sender: FDA-Public Use
  Company Number: DSA_44332_2010

PATIENT
  Age: 83 Year
  Sex: Male

DRUGS (9)
  1. ENALAPRIL MALEATE [Suspect]
     Indication: ESSENTIAL HYPERTENSION
     Dosage: DF ORAL
     Route: 048
     Dates: end: 20100701
  2. CRESTOR [Suspect]
     Indication: HYPERLIPIDAEMIA
     Dosage: DF ORAL
     Route: 048
     Dates: end: 20100701
  3. CRESTOR [Suspect]
     Indication: HYPERTRIGLYCERIDAEMIA
     Dosage: DF ORAL
     Route: 048
     Dates: end: 20100701
  4. FURIX (FURIX - FUROSEMIDE) (NOT SPECIFIED) [Suspect]
     Indication: ESSENTIAL HYPERTENSION
     Dosage: DF ORAL
     Route: 048
  5. FELODIPINE [Concomitant]
  6. METOPROLOL [Concomitant]
  7. CILAXORAL [Concomitant]
  8. LACTULOSE [Concomitant]
  9. WARAN [Concomitant]

REACTIONS (3)
  - BLOOD CREATININE INCREASED [None]
  - CEREBROVASCULAR ACCIDENT [None]
  - DEHYDRATION [None]
